FAERS Safety Report 5327221-8 (Version None)
Quarter: 2007Q2

REPORT INFORMATION
  Report Type: 
  Country: None (occurrence: None)
  Receive Date: 20070514
  Receipt Date: 20070514
  Transmission Date: 20071010
  Serious: No
  Sender: FDA-Public Use
  Company Number: None

PATIENT
  Age: 28 Year
  Sex: Female
  Weight: 90.7194 kg

DRUGS (3)
  1. PROAIR HFA [Suspect]
     Indication: ASTHMA
     Dosage: 200 METERED INHALATIONS 2X PER DAY PO
     Route: 055
     Dates: start: 20070403, end: 20070513
  2. WALATIN [Concomitant]
  3. ADVIL [Concomitant]

REACTIONS (9)
  - DRUG EFFECT DECREASED [None]
  - DRUG HYPERSENSITIVITY [None]
  - PAIN [None]
  - PHARMACEUTICAL PRODUCT COMPLAINT [None]
  - PRURITUS [None]
  - RASH GENERALISED [None]
  - THERAPEUTIC RESPONSE UNEXPECTED WITH DRUG SUBSTITUTION [None]
  - URTICARIA [None]
  - URTICARIA GENERALISED [None]
